FAERS Safety Report 15926436 (Version 1)
Quarter: 2019Q1

REPORT INFORMATION
  Report Type: Spontaneous
  Country: US (occurrence: US)
  Receive Date: 20190206
  Receipt Date: 20190206
  Transmission Date: 20190417
  Serious: No
  Sender: FDA-Public Use
  Company Number: US-MYLANLABS-2019M1006038

PATIENT
  Sex: Female
  Weight: 59 kg

DRUGS (1)
  1. XULANE [Suspect]
     Active Substance: ETHINYL ESTRADIOL\NORELGESTROMIN
     Indication: DYSMENORRHOEA
     Dosage: UNK
     Route: 062
     Dates: start: 201812

REACTIONS (2)
  - Off label use [Unknown]
  - Product adhesion issue [Unknown]
